FAERS Safety Report 7578704-1 (Version None)
Quarter: 2011Q2

REPORT INFORMATION
  Report Type: 
  Country: None (occurrence: None)
  Receive Date: 20110628
  Receipt Date: 20110621
  Transmission Date: 20111010
  Serious: Yes (Hospitalization, Other)
  Sender: FDA-Public Use
  Company Number: AU-SANOFI-AVENTIS-2011SA031228

PATIENT
  Age: 52 Year
  Sex: Female

DRUGS (1)
  1. DOCETAXEL [Suspect]
     Route: 041
     Dates: start: 20110516, end: 20110516

REACTIONS (3)
  - EXTRAVASATION [None]
  - COLLAPSE OF LUNG [None]
  - PLEURITIC PAIN [None]
